FAERS Safety Report 6211655-3 (Version None)
Quarter: 2009Q2

REPORT INFORMATION
  Report Type: 
  Country: None (occurrence: None)
  Receive Date: 20090602
  Receipt Date: 20090525
  Transmission Date: 20091009
  Serious: Yes (Hospitalization)
  Sender: FDA-Public Use
  Company Number: A0787547A

PATIENT
  Sex: Female
  Weight: 57 kg

DRUGS (3)
  1. SERETIDE [Suspect]
     Indication: CHRONIC OBSTRUCTIVE PULMONARY DISEASE
     Route: 055
     Dates: start: 20070701, end: 20070801
  2. SPIRIVA [Concomitant]
     Dosage: 2TAB TWICE PER DAY
     Dates: start: 20070701, end: 20070801
  3. COMBIVENT [Concomitant]
     Dates: start: 20070701, end: 20070801

REACTIONS (3)
  - INFARCTION [None]
  - OEDEMA PERIPHERAL [None]
  - PNEUMONIA [None]
